FAERS Safety Report 15046178 (Version 1)
Quarter: 2018Q2

REPORT INFORMATION
  Report Type: Spontaneous
  Country: GB (occurrence: GB)
  Receive Date: 20180621
  Receipt Date: 20180621
  Transmission Date: 20180711
  Serious: Yes (Other)
  Sender: FDA-Public Use
  Company Number: GB-TEVA-2018-GB-910679

PATIENT
  Age: 50 Year
  Sex: Female
  Weight: 95 kg

DRUGS (6)
  1. EVOREL SEQUI [Concomitant]
     Active Substance: ESTRADIOL\NORETHINDRONE ACETATE
     Route: 065
  2. LISINOPRIL. [Concomitant]
     Active Substance: LISINOPRIL
     Route: 065
  3. DIAZEPAM. [Concomitant]
     Active Substance: DIAZEPAM
     Route: 065
  4. GENERICS UK CARBAMAZEPINE [Suspect]
     Active Substance: CARBAMAZEPINE
     Indication: TRIGEMINAL NEURALGIA
     Dosage: GRADUAL INCREASE FROM 100MG ONCE DAILY OVER 5 WEEK PERIOD
     Route: 048
     Dates: start: 20180424, end: 20180430
  5. TRAMADOL HYDROCHLORIDE. [Concomitant]
     Active Substance: TRAMADOL HYDROCHLORIDE
     Route: 065
  6. TEGRETOL [Suspect]
     Active Substance: CARBAMAZEPINE
     Indication: TRIGEMINAL NEURALGIA
     Dosage: GRADUAL INCREASE TO FROM 100MG ONCE DAILY TO 200MG 4 TIMES DAILY
     Route: 048
     Dates: start: 20180328, end: 20180423

REACTIONS (8)
  - Malaise [Unknown]
  - Rash erythematous [Not Recovered/Not Resolved]
  - Drug reaction with eosinophilia and systemic symptoms [Not Recovered/Not Resolved]
  - Lethargy [Unknown]
  - Mouth ulceration [Unknown]
  - Oropharyngeal pain [Unknown]
  - Fatigue [Unknown]
  - Pyrexia [Unknown]

NARRATIVE: CASE EVENT DATE: 20180328
